FAERS Safety Report 20537946 (Version 2)
Quarter: 2022Q2

REPORT INFORMATION
  Report Type: Spontaneous
  Country: US (occurrence: US)
  Receive Date: 20220302
  Receipt Date: 20220604
  Transmission Date: 20220721
  Serious: No
  Sender: FDA-Public Use
  Company Number: US-SA-SAC20220225000229

PATIENT
  Age: 76 Year
  Sex: Female

DRUGS (28)
  1. DUPIXENT [Suspect]
     Active Substance: DUPILUMAB
     Indication: Asthma
     Dosage: 600MG, 1X
     Route: 058
     Dates: start: 20220215, end: 20220215
  2. LANTUS [Concomitant]
     Active Substance: INSULIN GLARGINE
  3. CALCIUM CITRATE [Concomitant]
     Active Substance: CALCIUM CITRATE
  4. DULOXETINE [Concomitant]
     Active Substance: DULOXETINE
  5. COMBIVENT [Concomitant]
     Active Substance: ALBUTEROL SULFATE\IPRATROPIUM BROMIDE
  6. DORZOLAMIDE [Concomitant]
     Active Substance: DORZOLAMIDE
  7. TRIAMCINOLONE [Concomitant]
     Active Substance: TRIAMCINOLONE
  8. LORATADINE [Concomitant]
     Active Substance: LORATADINE
  9. MONTELUKAST SODIUM [Concomitant]
     Active Substance: MONTELUKAST SODIUM
  10. SYMBICORT [Concomitant]
     Active Substance: BUDESONIDE\FORMOTEROL FUMARATE DIHYDRATE
  11. TRAMADOL [Concomitant]
     Active Substance: TRAMADOL
  12. TRAVOPROST [Concomitant]
     Active Substance: TRAVOPROST
  13. EXEMESTANE [Concomitant]
     Active Substance: EXEMESTANE
  14. GLIPIZIDE [Concomitant]
     Active Substance: GLIPIZIDE
  15. INVOKANA [Concomitant]
     Active Substance: CANAGLIFLOZIN
  16. ALBUTEROL SULFATE [Concomitant]
     Active Substance: ALBUTEROL SULFATE
  17. PREDNISONE [Concomitant]
     Active Substance: PREDNISONE
  18. AZITHROMYCIN [Concomitant]
     Active Substance: AZITHROMYCIN
  19. FLUTICASONE PROPIONATE [Concomitant]
     Active Substance: FLUTICASONE PROPIONATE
  20. CARVEDILOL [Concomitant]
     Active Substance: CARVEDILOL
  21. PRAZOSIN HYDROCHLORIDE [Concomitant]
     Active Substance: PRAZOSIN HYDROCHLORIDE
  22. OMEPRAZOLE [Concomitant]
     Active Substance: OMEPRAZOLE
  23. VITAMIN D3 [Concomitant]
     Active Substance: CHOLECALCIFEROL
  24. GUAIFENESIN [Concomitant]
     Active Substance: GUAIFENESIN
  25. CODEINE [Concomitant]
     Active Substance: CODEINE
  26. DOXYCYCLINE HYCLATE [Concomitant]
     Active Substance: DOXYCYCLINE HYCLATE
  27. FASENRA [Concomitant]
     Active Substance: BENRALIZUMAB
  28. CALCIUM CITRATE [Concomitant]
     Active Substance: CALCIUM CITRATE
     Indication: Iron deficiency anaemia

REACTIONS (1)
  - Injection site erythema [Recovered/Resolved]

NARRATIVE: CASE EVENT DATE: 20220215
